FAERS Safety Report 24956210 (Version 1)
Quarter: 2025Q1

REPORT INFORMATION
  Report Type: Spontaneous
  Country: US (occurrence: US)
  Receive Date: 20250211
  Receipt Date: 20250211
  Transmission Date: 20250408
  Serious: No
  Sender: ROCHE
  Company Number: US-ROCHE-10000196617

PATIENT
  Age: 41 Year
  Sex: Male

DRUGS (1)
  1. XOLAIR [Suspect]
     Active Substance: OMALIZUMAB
     Indication: Mechanical urticaria
     Dosage: 300MG/2ML
     Route: 058

REACTIONS (6)
  - Paraesthesia [Unknown]
  - Paraesthesia [Unknown]
  - Urticaria [Unknown]
  - Sinus congestion [Unknown]
  - Headache [Unknown]
  - Mechanical urticaria [Unknown]
